FAERS Safety Report 9559593 (Version 3)
Quarter: 2013Q4

REPORT INFORMATION
  Report Type: Spontaneous
  Country: JP (occurrence: JP)
  Receive Date: 20130927
  Receipt Date: 20131029
  Transmission Date: 20140711
  Serious: Yes (Hospitalization)
  Sender: FDA-Public Use
  Company Number: JP-JNJFOC-20130913442

PATIENT
  Age: 60 Year
  Sex: Female
  Weight: 47 kg

DRUGS (25)
  1. REMICADE [Suspect]
     Indication: CROHN^S DISEASE
     Route: 042
     Dates: start: 20100630
  2. REMICADE [Suspect]
     Indication: CROHN^S DISEASE
     Route: 042
     Dates: start: 20100728
  3. REMICADE [Suspect]
     Indication: CROHN^S DISEASE
     Route: 042
     Dates: start: 20100922
  4. REMICADE [Suspect]
     Indication: CROHN^S DISEASE
     Route: 042
     Dates: start: 20101117
  5. REMICADE [Suspect]
     Indication: CROHN^S DISEASE
     Route: 042
     Dates: start: 20130621
  6. REMICADE [Suspect]
     Indication: CROHN^S DISEASE
     Route: 042
     Dates: start: 20130705
  7. REMICADE [Suspect]
     Indication: CROHN^S DISEASE
     Route: 042
     Dates: start: 20130730
  8. REMICADE [Suspect]
     Indication: CROHN^S DISEASE
     Route: 042
     Dates: start: 20100616
  9. RESTAMIN [Concomitant]
     Indication: PREMEDICATION
     Route: 048
     Dates: start: 20130730
  10. CALONAL [Concomitant]
     Indication: HEADACHE
     Route: 048
  11. CALONAL [Concomitant]
     Indication: HEADACHE
     Route: 048
     Dates: start: 20130730
  12. CALONAL [Concomitant]
     Indication: PREMEDICATION
     Route: 048
     Dates: start: 20130730
  13. CALONAL [Concomitant]
     Indication: PREMEDICATION
     Route: 048
  14. SOL-MELCORT [Concomitant]
     Indication: PREMEDICATION
     Route: 042
     Dates: start: 20130730
  15. ISOTONIC SODIUM CHLORIDE SOLUTION [Concomitant]
     Route: 065
  16. HUMIRA [Concomitant]
     Route: 065
     Dates: start: 201012, end: 201204
  17. PENTASA [Concomitant]
     Indication: CROHN^S DISEASE
     Route: 048
  18. PENTASA [Concomitant]
     Indication: CROHN^S DISEASE
     Route: 048
  19. CEREKINON [Concomitant]
     Indication: CROHN^S DISEASE
     Route: 048
  20. CEREKINON [Concomitant]
     Indication: CROHN^S DISEASE
     Route: 048
  21. ELENTAL [Concomitant]
     Indication: CROHN^S DISEASE
     Route: 048
  22. ELENTAL [Concomitant]
     Indication: CROHN^S DISEASE
     Route: 048
  23. POSTERISAN [Concomitant]
     Indication: HAEMORRHOIDS
     Route: 048
     Dates: start: 20021002
  24. BROTIZOLAM [Concomitant]
     Indication: INSOMNIA
     Route: 048
  25. ALBUMIN TANNATE [Concomitant]
     Indication: CROHN^S DISEASE

REACTIONS (6)
  - Tremor [Recovering/Resolving]
  - Urticaria [Recovering/Resolving]
  - Infusion related reaction [Recovering/Resolving]
  - Back pain [Recovering/Resolving]
  - Anaphylactic reaction [Recovering/Resolving]
  - Crohn^s disease [Unknown]
